FAERS Safety Report 6964528-2 (Version None)
Quarter: 2010Q3

REPORT INFORMATION
  Report Type: 
  Country: None (occurrence: None)
  Receive Date: 20100903
  Receipt Date: 20100820
  Transmission Date: 20110219
  Serious: Yes (Hospitalization)
  Sender: FDA-Public Use
  Company Number: PHHY2010FR55844

PATIENT
  Sex: Male

DRUGS (6)
  1. ESIDRIX [Suspect]
     Dosage: 25 MG, QD
     Route: 048
     Dates: end: 20100701
  2. FOSINOPRIL W/HYDROCHLOROTHIAZIDE [Interacting]
     Dosage: 20 MG, QD
     Route: 048
  3. LERCANIDIPINE [Interacting]
     Dosage: 20 MG, QD
     Route: 048
  4. RILMENIDINE [Interacting]
     Dosage: 1 MG, QD
     Route: 048
  5. SELOKEN [Interacting]
     Dosage: 50 MG, QD
     Route: 048
  6. CANDESARTAN CILEXETIL [Interacting]
     Dosage: 32 MG, QD
     Route: 048

REACTIONS (5)
  - DRUG INTERACTION [None]
  - HYPOTENSION [None]
  - LOSS OF CONSCIOUSNESS [None]
  - MALAISE [None]
  - SYNCOPE [None]
